FAERS Safety Report 5817096-2 (Version None)
Quarter: 2008Q3

REPORT INFORMATION
  Report Type: 
  Country: None (occurrence: None)
  Receive Date: 20080722
  Receipt Date: 20080704
  Transmission Date: 20090109
  Serious: Yes (Hospitalization, Other)
  Sender: FDA-Public Use
  Company Number: GB-BAYER-200822181GPV

PATIENT
  Age: 31 Year
  Sex: Female

DRUGS (13)
  1. FLUDARABINE PHOSPHATE [Suspect]
     Indication: ACUTE MYELOID LEUKAEMIA
  2. ALEMTUZUMAB [Suspect]
     Indication: BONE MARROW CONDITIONING REGIMEN
     Route: 065
  3. CYTARABINE [Suspect]
     Indication: ACUTE MYELOID LEUKAEMIA
  4. IDARUBICIN HCL [Suspect]
     Indication: ACUTE MYELOID LEUKAEMIA
     Route: 065
  5. NEUPOGEN [Suspect]
     Indication: ACUTE MYELOID LEUKAEMIA
     Route: 065
  6. BUSULFAN [Suspect]
     Indication: BONE MARROW CONDITIONING REGIMEN
  7. CYCLOPHOSPHAMIDE [Suspect]
     Indication: BONE MARROW CONDITIONING REGIMEN
  8. AMPHOTERICIN B [Concomitant]
     Indication: DRUG USE FOR UNKNOWN INDICATION
     Route: 065
  9. CYCLOSPORINE [Concomitant]
     Indication: PROPHYLAXIS AGAINST GRAFT VERSUS HOST DISEASE
     Route: 065
  10. MYCOPHENOLATE MOFETIL [Concomitant]
     Indication: PROPHYLAXIS AGAINST GRAFT VERSUS HOST DISEASE
  11. TAZOBACTAM [Concomitant]
     Indication: INFECTION
     Route: 065
  12. MOXIFLOXACIN HCL [Concomitant]
     Indication: DRUG USE FOR UNKNOWN INDICATION
     Route: 065
  13. AMIKACIN [Concomitant]
     Indication: DRUG USE FOR UNKNOWN INDICATION
     Route: 065

REACTIONS (7)
  - ACUTE ABDOMEN [None]
  - CSF TEST ABNORMAL [None]
  - HEPATITIS [None]
  - ILEUS [None]
  - IMMUNE RECONSTITUTION SYNDROME [None]
  - LOSS OF CONSCIOUSNESS [None]
  - TUBERCULOSIS [None]
